FAERS Safety Report 24137386 (Version 1)
Quarter: 2024Q3

REPORT INFORMATION
  Report Type: Report from Study
  Country: RU (occurrence: None)
  Receive Date: 20240725
  Receipt Date: 20240725
  Transmission Date: 20241016
  Serious: Yes (Other)
  Sender: ASTRAZENECA
  Company Number: 2019SF82825

PATIENT
  Age: 46 Year
  Sex: Male

DRUGS (1)
  1. BRILINTA [Suspect]
     Active Substance: TICAGRELOR
     Indication: Myocardial infarction
     Route: 048
     Dates: start: 201905

REACTIONS (2)
  - Blood pressure decreased [Not Recovered/Not Resolved]
  - Extrasystoles [Not Recovered/Not Resolved]
